FAERS Safety Report 8928597 (Version 6)
Quarter: 2013Q4

REPORT INFORMATION
  Report Type: Report from Study
  Country: CA (occurrence: CA)
  Receive Date: 20121128
  Receipt Date: 20131206
  Transmission Date: 20140711
  Serious: Yes (Death, Hospitalization, Other)
  Sender: FDA-Public Use
  Company Number: PHHY2009CA56823

PATIENT
  Age: 50 Year
  Sex: Female

DRUGS (5)
  1. ZOMETA [Suspect]
     Indication: RENAL CELL CARCINOMA
     Dosage: 4 MG EVERY 4 WEEKS
     Route: 042
     Dates: start: 20091101
  2. ZOMETA [Suspect]
     Dosage: 4 MG, EVERY 4 WEEKS
     Route: 042
  3. ZOMETA [Suspect]
     Dosage: 4 MG, Q2 MONTHS
     Route: 042
     Dates: end: 20131021
  4. ZOMETA [Suspect]
     Dosage: UNK
  5. AVALOX [Suspect]

REACTIONS (26)
  - Death [Fatal]
  - Pneumonia [Unknown]
  - Lower respiratory tract infection [Unknown]
  - Influenza [Unknown]
  - Vomiting [Unknown]
  - Nausea [Unknown]
  - Lymphocyte count decreased [Recovering/Resolving]
  - Red cell distribution width increased [Recovering/Resolving]
  - Aspartate aminotransferase increased [Unknown]
  - Blood alkaline phosphatase increased [Unknown]
  - Carbon dioxide increased [Unknown]
  - Vein disorder [Unknown]
  - Panic attack [Unknown]
  - Haemorrhoids [Unknown]
  - Decubitus ulcer [Recovering/Resolving]
  - Haemoglobin abnormal [Not Recovered/Not Resolved]
  - Erythema [Unknown]
  - Tenderness [Unknown]
  - Blood potassium decreased [Unknown]
  - Blood magnesium decreased [Unknown]
  - Mean cell haemoglobin concentration decreased [Unknown]
  - Blood pressure increased [Unknown]
  - Anxiety [Unknown]
  - Pain [Unknown]
  - Pyrexia [Unknown]
  - Oedema peripheral [Unknown]
